FAERS Safety Report 23271396 (Version 3)
Quarter: 2024Q1

REPORT INFORMATION
  Report Type: Report from Study
  Country: NL (occurrence: NL)
  Receive Date: 20231207
  Receipt Date: 20240105
  Transmission Date: 20240410
  Serious: Yes (Hospitalization)
  Sender: FDA-Public Use
  Company Number: NL-AstraZeneca-2023A274813

PATIENT
  Age: 196 Day
  Sex: Male
  Weight: 6.9 kg

DRUGS (7)
  1. SYNAGIS [Suspect]
     Active Substance: PALIVIZUMAB
     Indication: Antiviral prophylaxis
     Dosage: MONTHLY
     Route: 030
     Dates: start: 20231110
  2. XYLOMETAZOLINE HYDROCHLORIDE [Concomitant]
     Active Substance: XYLOMETAZOLINE HYDROCHLORIDE
     Indication: Product used for unknown indication
     Dosage: 0.025 PERCENT
  3. SODIUM CHLORIDE [Concomitant]
     Active Substance: SODIUM CHLORIDE
     Indication: Product used for unknown indication
     Dosage: 9.0MG/ML
  4. ALCOHOL KET [Concomitant]
     Indication: Product used for unknown indication
     Dosage: 70 PERCENT
  5. TEGADERM F [Concomitant]
     Indication: Product used for unknown indication
  6. LEUKOS KUNSTZ [Concomitant]
     Indication: Product used for unknown indication
  7. ANTIBIOTICA INFUUS [Concomitant]
     Indication: Product used for unknown indication

REACTIONS (2)
  - Kidney infection [Not Recovered/Not Resolved]
  - Inappropriate schedule of product administration [Recovered/Resolved]

NARRATIVE: CASE EVENT DATE: 20231212
